FAERS Safety Report 6269712-1 (Version None)
Quarter: 2009Q3

REPORT INFORMATION
  Report Type: 
  Country: None (occurrence: None)
  Receive Date: 20090716
  Receipt Date: 20090714
  Transmission Date: 20100115
  Serious: Yes (Hospitalization)
  Sender: FDA-Public Use
  Company Number: ES-SP-2009-03053

PATIENT
  Age: 67 Year
  Sex: Male

DRUGS (1)
  1. BCG  THERAPEUTICS [Suspect]
     Indication: BLADDER CANCER
     Route: 043

REACTIONS (8)
  - ACUTE RESPIRATORY FAILURE [None]
  - CHILLS [None]
  - DYSPNOEA [None]
  - HYPERHIDROSIS [None]
  - LUNG NEOPLASM [None]
  - MALAISE [None]
  - PNEUMONITIS [None]
  - PYREXIA [None]
